FAERS Safety Report 9950253 (Version 2)
Quarter: 2014Q1

REPORT INFORMATION
  Report Type: Report from Study
  Country: US (occurrence: US)
  Receive Date: 20140304
  Receipt Date: 20140304
  Transmission Date: 20141002
  Serious: No
  Sender: FDA-Public Use
  Company Number: US-ABBVIE-12P-163-0945114-00

PATIENT
  Age: 62 Year
  Sex: Male

DRUGS (19)
  1. HUMIRA 40 MG/0.8 ML PEN [Suspect]
     Indication: CROHN^S DISEASE
     Dosage: LOADING DOSE
     Dates: start: 20120601
  2. HUMIRA 40 MG/0.8 ML PEN [Suspect]
  3. PREDNISONE [Concomitant]
     Indication: PRODUCT USED FOR UNKNOWN INDICATION
     Dosage: DAILY
  4. CLONIDINE [Concomitant]
     Indication: HYPERTENSION
     Dosage: PATCH 0.2MG APPLIED WEEKLY
  5. VICODIN [Concomitant]
     Indication: PAIN
  6. SOMA [Concomitant]
     Indication: BACK PAIN
     Dosage: 1-2 TIMES A DAY
  7. LOTREL [Concomitant]
     Indication: HYPERTENSION
     Dosage: DAILY
  8. TRILIPIX [Concomitant]
     Indication: BLOOD CHOLESTEROL INCREASED
     Dosage: DAILY
  9. XANAX [Concomitant]
     Indication: DEPRESSION
     Dosage: 2 TABLETS DAILY
  10. XANAX [Concomitant]
     Indication: ANXIETY
  11. XANAX [Concomitant]
     Indication: PANIC ATTACK
  12. SEROQUEL [Concomitant]
     Indication: INSOMNIA
     Dosage: DAILY
  13. WELCHOL [Concomitant]
     Indication: DIARRHOEA
  14. WELLBUTRIN [Concomitant]
     Indication: DEPRESSION
     Dosage: DAILY
  15. OMEPRAZOLE [Concomitant]
     Indication: GASTRIC DISORDER
     Dosage: DAILY
  16. LOVASTATIN [Concomitant]
     Indication: HYPERTENSION
     Dosage: DAILY
  17. LOPRESSOR [Concomitant]
     Indication: HYPERTENSION
  18. ZOLOFT [Concomitant]
     Indication: DEPRESSION
     Dosage: DAILY
  19. ASACOL [Concomitant]
     Indication: CROHN^S DISEASE
     Dosage: 6 TABLETS DAILY

REACTIONS (5)
  - Vision blurred [Not Recovered/Not Resolved]
  - Injection site pain [Recovered/Resolved]
  - Rash generalised [Not Recovered/Not Resolved]
  - Pruritus generalised [Not Recovered/Not Resolved]
  - Nausea [Unknown]
